FAERS Safety Report 23217092 (Version 1)
Quarter: 2023Q4

REPORT INFORMATION
  Report Type: Spontaneous
  Country: GB (occurrence: GB)
  Receive Date: 20231122
  Receipt Date: 20231122
  Transmission Date: 20240110
  Serious: Yes (Other)
  Sender: FDA-Public Use
  Company Number: None

PATIENT
  Age: 38 Year
  Sex: Male

DRUGS (29)
  1. NAPROXEN [Suspect]
     Active Substance: NAPROXEN
     Indication: Product used for unknown indication
     Route: 065
  2. BECLOMETHASONE DIPROPIONATE\FORMOTEROL FUMARATE\GLYCOPYRROLATE [Concomitant]
     Active Substance: BECLOMETHASONE DIPROPIONATE\FORMOTEROL FUMARATE\GLYCOPYRROLATE
     Indication: Product used for unknown indication
     Dosage: 4 DOSAGE FORMS DAILY; 87MICROGRAMS/DOSE / 5MICROGRAMS/DOSE / 9MICROGRAMS/DOSE, UNIT DOSE : 2 DF, BD
     Route: 055
  3. ALBUTEROL [Concomitant]
     Active Substance: ALBUTEROL
     Indication: Product used for unknown indication
     Dosage: 100MICROGRAMS/DOSE INHALER CFC FREE ONE OR TWO PUFFS TO BE UP TO FOUR TIMES A DAY
     Route: 055
  4. HYDROMOL [Concomitant]
     Indication: Product used for unknown indication
     Dosage: FREQUENCY : BD
  5. DERMOL [Concomitant]
     Active Substance: BENZALKONIUM CHLORIDE\CHLORHEXIDINE HYDROCHLORIDE\ISOPROPYL MYRISTATE\PARAFFIN
     Indication: Product used for unknown indication
     Dosage: APPLY TO SKIN OR USE AS A SOAP SUBSTITUTE
  6. CALCITRIOL [Concomitant]
     Active Substance: CALCITRIOL
     Indication: Product used for unknown indication
     Dosage: 3MICROGRAMS/G OINTMENT, APPLY EVERY NIGHT AS DIRECTED
  7. ACETAMINOPHEN [Concomitant]
     Active Substance: ACETAMINOPHEN
     Indication: Product used for unknown indication
     Dosage: ONE TO BE TAKEN EVERY 4-6 HOURS UP TO FOUR TIMES A DAY, UNIT DOSE: 500 MG
  8. FLUTICASONE PROPIONATE [Concomitant]
     Active Substance: FLUTICASONE PROPIONATE
     Indication: Product used for unknown indication
     Dosage: 4 DOSAGE FORMS DAILY; 50MICROGRAMS/DOSE  IN EACH NOSTRIL, UNIT DOSE : 2 DF, BD
     Route: 045
  9. BISOPROLOL [Concomitant]
     Active Substance: BISOPROLOL\BISOPROLOL FUMARATE
     Indication: Product used for unknown indication
     Dosage: 3.75 MILLIGRAM DAILY; UNIT DOSE: 3.75 MG, OD
  10. PROMETHAZINE HYDROCHLORIDE [Concomitant]
     Active Substance: PROMETHAZINE HYDROCHLORIDE
     Indication: Product used for unknown indication
     Dosage: 25 MILLIGRAM DAILY; AT NIGHT, UNIT DOSE : 25 MG, OD
  11. PREGABALIN [Concomitant]
     Active Substance: PREGABALIN
     Indication: Product used for unknown indication
     Dosage: 50 MILLIGRAM DAILY; UNIT DOSE: 25 MG, BD
  12. SIMVASTATIN [Concomitant]
     Active Substance: SIMVASTATIN
     Indication: Product used for unknown indication
     Dosage: 40 MILLIGRAM DAILY; AT NIGHT, UNIT DOSE: 40 MG
  13. BETAMETHASONE VALERATE [Concomitant]
     Active Substance: BETAMETHASONE VALERATE
     Indication: Product used for unknown indication
     Dosage: MORNING AND NIGHT
  14. BETAMETHASONE VALERATE [Concomitant]
     Active Substance: BETAMETHASONE VALERATE
     Dosage: APPLY THINLY TWICE A DAY MORNING AND NIGHT.
  15. FEXOFENADINE [Concomitant]
     Active Substance: FEXOFENADINE HYDROCHLORIDE
     Indication: Product used for unknown indication
     Dosage: 180 MILLIGRAM DAILY; IN THE MORNING, UNIT DOSE: 180 MG
  16. FUROSEMIDE [Concomitant]
     Active Substance: FUROSEMIDE
     Indication: Product used for unknown indication
     Dosage: 40 MILLIGRAM DAILY; UNIT DOSE : 40 MG, OD
  17. CLOBETASOL [Concomitant]
     Active Substance: CLOBETASOL
     Indication: Product used for unknown indication
     Dosage: APPLY THINLY ONCE A DAY IN THE MORNING
  18. ALFUZOSIN [Concomitant]
     Active Substance: ALFUZOSIN
     Indication: Product used for unknown indication
     Dosage: 10 MILLIGRAM DAILY; UNIT DOSE : 10 MG, OD
  19. BUTYLSCOPOLAMINE BROMIDE [Concomitant]
     Active Substance: BUTYLSCOPOLAMINE BROMIDE
     Indication: Product used for unknown indication
     Dosage: 40 MILLIGRAM DAILY; UNIT DOSE : 10 MG, 4 TIMES A DAY
  20. METFORMIN [Concomitant]
     Active Substance: METFORMIN HYDROCHLORIDE
     Indication: Product used for unknown indication
     Dosage: 2 GRAM DAILY; UNIT DOSE : 1 GRAM, BD
  21. SERTRALINE [Concomitant]
     Active Substance: SERTRALINE HYDROCHLORIDE
     Indication: Product used for unknown indication
     Dosage: 50 MILLIGRAM DAILY; UNIT DOSE : 50 MG, OD
  22. HYPROMELLOSES [Concomitant]
     Active Substance: HYPROMELLOSES
     Indication: Product used for unknown indication
  23. LINAGLIPTIN [Concomitant]
     Active Substance: LINAGLIPTIN
     Indication: Product used for unknown indication
     Dosage: 5 MILLIGRAM DAILY; UNIT DOSE : 5 MG, OD
  24. ZOPICLONE [Concomitant]
     Active Substance: ZOPICLONE
     Indication: Product used for unknown indication
     Dosage: 3.75 MILLIGRAM DAILY; 1-2 AT NIGHT, UNIT DOSE: 3.75 MG
  25. LANSOPRAZOLE [Concomitant]
     Active Substance: LANSOPRAZOLE
     Indication: Product used for unknown indication
     Dosage: 30 MILLIGRAM DAILY; UNIT DOSE : 30 MG, OD
  26. ALVERINE [Concomitant]
     Active Substance: ALVERINE
     Indication: Product used for unknown indication
     Dosage: 120 MILLIGRAM DAILY; UNIT DOSE : 120 MG, OD
  27. DESLORATADINE [Concomitant]
     Active Substance: DESLORATADINE
     Indication: Product used for unknown indication
     Dosage: 5 MILLIGRAM DAILY; UNIT DOSE :5 MG, OD
  28. CROMOLYN SODIUM [Concomitant]
     Active Substance: CROMOLYN SODIUM
     Indication: Product used for unknown indication
     Dosage: 4 DOSAGE FORMS DAILY; IN THE AFFECTED EYE(S), UNIT DOSE: 1 DF, 4 TIMES A DAY
     Route: 047
  29. SILDENAFIL [Concomitant]
     Active Substance: SILDENAFIL
     Indication: Product used for unknown indication
     Dosage: AS DIRECTED, UNIT DOSE : 100 MG

REACTIONS (2)
  - Acute kidney injury [Unknown]
  - Oedema [Unknown]
